FAERS Safety Report 14949154 (Version 1)
Quarter: 2018Q2

REPORT INFORMATION
  Report Type: Spontaneous
  Country: GB (occurrence: GB)
  Receive Date: 20180529
  Receipt Date: 20180529
  Transmission Date: 20180711
  Serious: Yes (Other)
  Sender: FDA-Public Use
  Company Number: GB-PFIZER INC-2018212512

PATIENT
  Age: 24 Year
  Sex: Female
  Weight: 57 kg

DRUGS (1)
  1. DOXYCYCLINE MONOHYDRATE [Suspect]
     Active Substance: DOXYCYCLINE
     Dosage: UNK
     Route: 048

REACTIONS (1)
  - Tinnitus [Recovered/Resolved with Sequelae]
